FAERS Safety Report 19684994 (Version 1)
Quarter: 2021Q3

REPORT INFORMATION
  Report Type: Spontaneous
  Country: US (occurrence: US)
  Receive Date: 20210810
  Receipt Date: 20210810
  Transmission Date: 20211014
  Serious: Yes (Life-Threatening, Hospitalization)
  Sender: FDA-Public Use
  Company Number: None

PATIENT
  Age: 75 Year
  Sex: Male
  Weight: 95.26 kg

DRUGS (1)
  1. PROLENSA [Suspect]
     Active Substance: BROMFENAC SODIUM
     Indication: INFLAMMATION
     Route: 031
     Dates: start: 20200513, end: 20201220

REACTIONS (2)
  - Product prescribing issue [None]
  - Deafness [None]

NARRATIVE: CASE EVENT DATE: 20200921
